FAERS Safety Report 13911279 (Version 1)
Quarter: 2017Q3

REPORT INFORMATION
  Report Type: Spontaneous
  Country: DK (occurrence: DK)
  Receive Date: 20170828
  Receipt Date: 20170828
  Transmission Date: 20171127
  Serious: Yes (Other)
  Sender: FDA-Public Use
  Company Number: PHHY2017DK123431

PATIENT
  Age: 77 Year
  Sex: Male

DRUGS (2)
  1. AMIODARONE [Suspect]
     Active Substance: AMIODARONE
     Dosage: 300 MG, UNK
     Route: 058
  2. AMIODARONE [Suspect]
     Active Substance: AMIODARONE
     Indication: CARDIAC ARREST
     Dosage: 150 MG, UNK
     Route: 058

REACTIONS (6)
  - Blister [Unknown]
  - Mobility decreased [Not Recovered/Not Resolved]
  - Incorrect route of drug administration [Unknown]
  - Onychomadesis [Unknown]
  - Skin necrosis [Unknown]
  - Oedema peripheral [Unknown]
